FAERS Safety Report 17674441 (Version 1)
Quarter: 2020Q2

REPORT INFORMATION
  Report Type: Spontaneous
  Country: US (occurrence: US)
  Receive Date: 20200416
  Receipt Date: 20200416
  Transmission Date: 20200714
  Serious: Yes (Hospitalization, Other)
  Sender: FDA-Public Use
  Company Number: US-HIKMA PHARMACEUTICALS USA INC.-US-H14001-20-51123

PATIENT
  Age: 64 Year
  Sex: Female

DRUGS (2)
  1. LEVOTHYROXINE. [Concomitant]
     Active Substance: LEVOTHYROXINE
     Indication: PRODUCT USED FOR UNKNOWN INDICATION
     Dosage: UNKNOWN NUMBER OF AMLODIPINE AND LEVOTHYROXINE PILLS ()
     Route: 048
  2. AMLODIPINE [Suspect]
     Active Substance: AMLODIPINE BESYLATE
     Indication: PRODUCT USED FOR UNKNOWN INDICATION
     Dosage: UNKNOWN NUMBER OF AMLODIPINE AND LEVOTHYROXINE PILLS ()
     Route: 048

REACTIONS (13)
  - Toxicity to various agents [Unknown]
  - Acute kidney injury [Unknown]
  - Shock [Unknown]
  - Metabolic acidosis [Unknown]
  - Hypotension [Unknown]
  - Liver injury [Unknown]
  - Nodal rhythm [Recovering/Resolving]
  - Haemodynamic instability [Unknown]
  - Rhabdomyolysis [Unknown]
  - Harlequin syndrome [Unknown]
  - Intentional overdose [Unknown]
  - Ischaemia [Unknown]
  - Leukocytosis [Unknown]
